FAERS Safety Report 6687592-7 (Version None)
Quarter: 2010Q2

REPORT INFORMATION
  Report Type: 
  Country: None (occurrence: None)
  Receive Date: 20100416
  Receipt Date: 20100416
  Transmission Date: 20101027
  Serious: Yes (Life-Threatening, Other)
  Sender: FDA-Public Use
  Company Number: None

PATIENT
  Age: 63 Year
  Sex: Female
  Weight: 74.8435 kg

DRUGS (1)
  1. CYMBALTA [Suspect]
     Indication: DEPRESSION
     Dosage: 60MG Q DAY PO
     Route: 048
     Dates: start: 20091115, end: 20100322

REACTIONS (10)
  - ANXIETY [None]
  - COORDINATION ABNORMAL [None]
  - HEADACHE [None]
  - MANIA [None]
  - MENTAL STATUS CHANGES [None]
  - NAUSEA [None]
  - NERVOUSNESS [None]
  - ROAD TRAFFIC ACCIDENT [None]
  - SYNCOPE [None]
  - WITHDRAWAL SYNDROME [None]
